FAERS Safety Report 4540549-4 (Version None)
Quarter: 2004Q4

REPORT INFORMATION
  Report Type: 
  Country: None (occurrence: None)
  Receive Date: 20041229
  Receipt Date: 20040406
  Transmission Date: 20050328
  Serious: Yes (Hospitalization)
  Sender: FDA-Public Use
  Company Number: HU-SOLVAY-00204000990

PATIENT
  Age: 27199 Day
  Sex: Male
  Weight: 65 kg

DRUGS (8)
  1. NITROGLYCERIN [Concomitant]
     Indication: ILL-DEFINED DISORDER
     Dosage: DAILY DOSE: UNK.
     Route: 065
     Dates: start: 20031024, end: 20040402
  2. BLINDED THERAPY [PERINDOPRIL VS PLACEBO] [Suspect]
     Indication: CORONARY ARTERY DISEASE
     Dosage: DAILY DOSE: 8 MG.
     Route: 048
     Dates: start: 20031105, end: 20041208
  3. ACETYLSALICYLIC ACID [Concomitant]
     Indication: ILL-DEFINED DISORDER
     Dosage: DAILY DOSE: UNK.
     Route: 065
     Dates: start: 20031024
  4. AMIODARONE [Concomitant]
     Indication: ILL-DEFINED DISORDER
     Dosage: DAILY DOSE: UNK.
     Route: 065
     Dates: start: 20031027, end: 20040120
  5. METOPROLOL TARTRATE [Concomitant]
     Indication: ILL-DEFINED DISORDER
     Dosage: DAILY DOSE: UNK.
     Route: 065
     Dates: start: 20031024
  6. THIAMAZOLE [Concomitant]
     Indication: ILL-DEFINED DISORDER
     Dosage: DAILY DOSE:  UNKNOWN
     Route: 065
     Dates: start: 20040128
  7. ACARBOSE [Concomitant]
     Indication: ILL-DEFINED DISORDER
     Dosage: DAILY DOSE:  UNKNOWN
     Route: 065
     Dates: start: 20031001
  8. ACENOCOUMAROL [Concomitant]
     Indication: ILL-DEFINED DISORDER
     Dosage: DAILY DOSE:  UNKNOWN
     Route: 065
     Dates: start: 20040916

REACTIONS (4)
  - BRADYARRHYTHMIA [None]
  - CARDIAC FAILURE [None]
  - CHEST PAIN [None]
  - NEOPLASM [None]
